FAERS Safety Report 5970106-4 (Version None)
Quarter: 2008Q4

REPORT INFORMATION
  Report Type: 
  Country: None (occurrence: None)
  Receive Date: 20081126
  Receipt Date: 20081117
  Transmission Date: 20090506
  Serious: Yes (Other)
  Sender: FDA-Public Use
  Company Number: DE-PFIZER INC-2008097878

PATIENT
  Age: 60 Year
  Sex: Female

DRUGS (2)
  1. AROMASIN [Suspect]
     Route: 048
     Dates: start: 20050101
  2. CARBIMAZOLE [Concomitant]
     Route: 048

REACTIONS (2)
  - ALOPECIA [None]
  - HYPERTHYROIDISM [None]
